FAERS Safety Report 10228693 (Version 2)
Quarter: 2014Q2

REPORT INFORMATION
  Report Type: Report from Study
  Country: US (occurrence: US)
  Receive Date: 20140610
  Receipt Date: 20140610
  Transmission Date: 20141212
  Serious: Yes (Other)
  Sender: FDA-Public Use
  Company Number: US-DENDREON CORPORATION-2013PROUSA02474

PATIENT
  Age: 73 Year
  Sex: Male
  Weight: 105.8 kg

DRUGS (9)
  1. SIPULEUCEL-T [Suspect]
     Indication: PROSTATE CANCER METASTATIC
     Dosage: 250 ML, SINGLE
     Route: 042
     Dates: start: 20121217, end: 20121217
  2. SIPULEUCEL-T [Suspect]
     Dosage: 250 ML, SINGLE
     Route: 042
     Dates: start: 20121231, end: 20121231
  3. SIPULEUCEL-T [Suspect]
     Dosage: 250 ML, SINGLE
     Route: 042
     Dates: start: 20130114, end: 20130114
  4. ASPIRIN [Concomitant]
     Indication: PRODUCT USED FOR UNKNOWN INDICATION
     Dosage: 81 MG, UNK
  5. CALCIUM [Concomitant]
     Indication: PRODUCT USED FOR UNKNOWN INDICATION
     Dosage: 1 G, UNK
  6. DIOVAN HCT [Concomitant]
     Indication: PRODUCT USED FOR UNKNOWN INDICATION
     Dosage: 320/25
  7. LIPITOR [Concomitant]
     Indication: PRODUCT USED FOR UNKNOWN INDICATION
     Dosage: 20 MG, UNK
  8. LUPRON [Concomitant]
     Indication: PRODUCT USED FOR UNKNOWN INDICATION
     Dosage: 22.5 MG, UNK
  9. VITAMIN D [Concomitant]
     Indication: PRODUCT USED FOR UNKNOWN INDICATION
     Dosage: 400 IU, UNK

REACTIONS (2)
  - Blood pressure decreased [Recovered/Resolved]
  - Chills [Recovered/Resolved]
